FAERS Safety Report 12392257 (Version 1)
Quarter: 2016Q2

REPORT INFORMATION
  Report Type: Spontaneous
  Country: US (occurrence: None)
  Receive Date: 20160520
  Receipt Date: 20160520
  Transmission Date: 20160815
  Serious: Yes (Hospitalization)
  Sender: FDA-Public Use
  Company Number: None

PATIENT
  Age: 36 Year
  Sex: Female
  Weight: 50.8 kg

DRUGS (1)
  1. MEDROXYPROGESTERONE [Suspect]
     Active Substance: MEDROXYPROGESTERONE
     Indication: CONTRACEPTION
     Dosage: 1 ML EVERY 12 WEEKS INTRAMUSCULAR
     Route: 030

REACTIONS (3)
  - Contusion [None]
  - Nonspecific reaction [None]
  - Rash [None]

NARRATIVE: CASE EVENT DATE: 20160518
